FAERS Safety Report 10600201 (Version 2)
Quarter: 2014Q4

REPORT INFORMATION
  Report Type: Spontaneous
  Country: FR (occurrence: FR)
  Receive Date: 20141122
  Receipt Date: 20141212
  Transmission Date: 20150529
  Serious: Yes (Hospitalization, Disabling, Other)
  Sender: FDA-Public Use
  Company Number: FR-ASTRAZENECA-2014SE87730

PATIENT
  Age: 75 Year
  Sex: Male
  Weight: 75 kg

DRUGS (6)
  1. CASODEX [Suspect]
     Active Substance: BICALUTAMIDE
     Indication: PROSTATE CANCER
     Route: 048
     Dates: start: 20130217, end: 20140616
  2. CASODEX [Suspect]
     Active Substance: BICALUTAMIDE
     Indication: PROSTATE CANCER
     Route: 048
     Dates: start: 20140616
  3. APROVEL [Concomitant]
     Active Substance: IRBESARTAN
     Indication: HYPERTENSION
     Dosage: FOR YEARS, 0.5 DF EVERY OTHER DAY
  4. LASILIX [Concomitant]
     Active Substance: FUROSEMIDE
     Dates: end: 201410
  5. ZOLADEX [Suspect]
     Active Substance: GOSERELIN ACETATE
     Indication: PROSTATE CANCER
     Route: 058
     Dates: start: 2002
  6. CASODEX [Suspect]
     Active Substance: BICALUTAMIDE
     Indication: PROSTATE CANCER
     Route: 048
     Dates: start: 20090401, end: 20130217

REACTIONS (13)
  - Silent myocardial infarction [Recovered/Resolved]
  - Prostatomegaly [Recovered/Resolved]
  - Muscle spasms [Recovered/Resolved]
  - Eructation [Unknown]
  - Malignant neoplasm progression [Recovered/Resolved]
  - Initial insomnia [Recovered/Resolved]
  - Pain in extremity [Recovered/Resolved]
  - Limb discomfort [Recovered/Resolved]
  - Flatulence [Unknown]
  - Insomnia [Recovered/Resolved]
  - Sciatica [Recovered/Resolved]
  - Condition aggravated [Recovered/Resolved]
  - Vomiting [Unknown]

NARRATIVE: CASE EVENT DATE: 2006
